FAERS Safety Report 21331313 (Version 1)
Quarter: 2022Q3

REPORT INFORMATION
  Report Type: Spontaneous
  Country: JP (occurrence: JP)
  Receive Date: 20220914
  Receipt Date: 20220914
  Transmission Date: 20221026
  Serious: Yes (Disabling)
  Sender: FDA-Public Use
  Company Number: JP-NOVARTISPH-NVSJ2022JP097094

PATIENT
  Age: 80 Year
  Sex: Female

DRUGS (2)
  1. BEOVU [Suspect]
     Active Substance: BROLUCIZUMAB-DBLL
     Indication: Retinal vein occlusion
     Dosage: 6 MG
     Route: 031
     Dates: start: 20220316, end: 20220817
  2. TRIAMCINOLONE ACETONIDE [Concomitant]
     Active Substance: TRIAMCINOLONE ACETONIDE
     Indication: Visual field defect
     Dosage: UNK
     Route: 047

REACTIONS (3)
  - Cystoid macular oedema [Not Recovered/Not Resolved]
  - Iritis [Unknown]
  - Product use in unapproved indication [Unknown]

NARRATIVE: CASE EVENT DATE: 20220317
